FAERS Safety Report 9445700 (Version 1)
Quarter: 2013Q3

REPORT INFORMATION
  Report Type: Spontaneous
  Country: US (occurrence: US)
  Receive Date: 20130807
  Receipt Date: 20130807
  Transmission Date: 20140515
  Serious: Yes (Other)
  Sender: FDA-Public Use
  Company Number: US-TEVA-422965USA

PATIENT
  Age: 40 Year
  Sex: Female
  Weight: 76.73 kg

DRUGS (6)
  1. COPAXONE [Suspect]
     Indication: RELAPSING-REMITTING MULTIPLE SCLEROSIS
     Dosage: 20 MILLIGRAM DAILY;
     Route: 058
  2. BACLOFEN [Concomitant]
  3. FLUOXETINE [Concomitant]
     Indication: DEPRESSION
  4. FLUOXETINE [Concomitant]
     Indication: ASTHENIA
  5. SUMATRIPTAN [Concomitant]
     Indication: MIGRAINE
  6. BUSPAR [Concomitant]
     Indication: ANXIETY

REACTIONS (2)
  - Multiple sclerosis relapse [Recovered/Resolved]
  - Urinary tract infection [Recovered/Resolved]
